FAERS Safety Report 4550400-4 (Version None)
Quarter: 2004Q4

REPORT INFORMATION
  Report Type: 
  Country: None (occurrence: None)
  Receive Date: 20041227
  Receipt Date: 20040916
  Transmission Date: 20050328
  Serious: No
  Sender: FDA-Public Use
  Company Number: 04P-163-0265994-00

PATIENT
  Age: 81 Year
  Sex: Female
  Weight: 56.6996 kg

DRUGS (12)
  1. HUMIRA [Suspect]
     Indication: RHEUMATOID ARTHRITIS
     Dosage: SEE IMAGE
     Route: 058
     Dates: start: 20040101, end: 20040601
  2. HUMIRA [Suspect]
     Indication: RHEUMATOID ARTHRITIS
     Dosage: SEE IMAGE
     Route: 058
     Dates: start: 20040115, end: 20040601
  3. PREDNISONE [Concomitant]
  4. METOPROLOL [Concomitant]
  5. DILTIAZEM HYDROCHLORIDE [Concomitant]
  6. MOEXIPRIL HYDROCHLORIDE [Concomitant]
  7. LANSOPRAZOLE [Concomitant]
  8. FUROSEMIDE [Concomitant]
  9. POTASSIUM CHLORIDE [Concomitant]
  10. FLUTICASONE PROPIONATE [Concomitant]
  11. CALCIUM GLUCONATE [Concomitant]
  12. MULTI-VITAMINS [Concomitant]

REACTIONS (1)
  - INFLUENZA [None]
